FAERS Safety Report 13103158 (Version 1)
Quarter: 2017Q1

REPORT INFORMATION
  Report Type: Spontaneous
  Country: US (occurrence: US)
  Receive Date: 20170110
  Receipt Date: 20170110
  Transmission Date: 20170428
  Serious: Yes (Hospitalization, Other)
  Sender: FDA-Public Use
  Company Number: US-BAUSCH-BL-2017-000485

PATIENT
  Age: 52 Year
  Sex: Male

DRUGS (1)
  1. 5-FLUOROURACIL [Suspect]
     Active Substance: FLUOROURACIL
     Indication: CHEMOTHERAPY
     Dosage: ENTIRE COURSE OF 5-FU IN 24
     Route: 065

REACTIONS (8)
  - Toxicity to various agents [Recovered/Resolved]
  - Chest pain [Unknown]
  - Dyspnoea [Unknown]
  - Overdose [Unknown]
  - Hyperhidrosis [Unknown]
  - Nausea [Unknown]
  - Diarrhoea [Unknown]
  - White blood cell count increased [Recovered/Resolved]
